FAERS Safety Report 20371374 (Version 1)
Quarter: 2022Q1

REPORT INFORMATION
  Report Type: Spontaneous
  Country: US (occurrence: US)
  Receive Date: 20220124
  Receipt Date: 20220124
  Transmission Date: 20220423
  Serious: No
  Sender: FDA-Public Use
  Company Number: US-BAYER-2022A012794

PATIENT
  Age: 50 Year
  Sex: Female

DRUGS (1)
  1. MIRALAX [Suspect]
     Active Substance: POLYETHYLENE GLYCOL 3350
     Dosage: ONE DOSE A DAY DOSE
     Route: 048
     Dates: start: 202201

REACTIONS (3)
  - Drug ineffective [Not Recovered/Not Resolved]
  - Abdominal distension [Not Recovered/Not Resolved]
  - Muscle spasms [Not Recovered/Not Resolved]

NARRATIVE: CASE EVENT DATE: 20220101
